FAERS Safety Report 16993177 (Version 3)
Quarter: 2019Q4

REPORT INFORMATION
  Report Type: Spontaneous
  Country: US (occurrence: US)
  Receive Date: 20191105
  Receipt Date: 20191119
  Transmission Date: 20200122
  Serious: Yes (Death)
  Sender: FDA-Public Use
  Company Number: US-APOTEX-2019AP023725

PATIENT

DRUGS (4)
  1. FENTANYL. [Suspect]
     Active Substance: FENTANYL
     Indication: ANALGESIC THERAPY
     Dosage: 1 DF, UNK, (1 PATCT AND 1 APPLICATION FOR 60 HOURS)
     Route: 062
  2. ISOFLURANE. [Concomitant]
     Active Substance: ISOFLURANE
     Indication: ANAESTHESIA
     Dosage: 3 %, UNK FOR 4 HOURS. INHALED
     Route: 050
  3. PENICILLIN G                       /00000901/ [Concomitant]
     Active Substance: PENICILLIN G
     Indication: ANTIBIOTIC PROPHYLAXIS
     Dosage: UNK, (NORMAL DOSE FOR AN 81KG SHEEP)
     Route: 065
  4. IRON DEXTRAN [Concomitant]
     Active Substance: IRON DEXTRAN
     Indication: MINERAL SUPPLEMENTATION
     Dosage: UNK, ONCE ON THE SURGERY
     Route: 065

REACTIONS (6)
  - Application site pain [Fatal]
  - Inflammation [Fatal]
  - Off label use [Unknown]
  - Overdose [Fatal]
  - Complication of device removal [Fatal]
  - Product adhesion issue [Unknown]
